FAERS Safety Report 18527868 (Version 3)
Quarter: 2021Q1

REPORT INFORMATION
  Report Type: Report from Study
  Country: US (occurrence: US)
  Receive Date: 20201120
  Receipt Date: 20210306
  Transmission Date: 20210419
  Serious: Yes (Death, Hospitalization, Other)
  Sender: FDA-Public Use
  Company Number: US-TEVA-2020-US-1852011

PATIENT
  Age: 77 Year
  Sex: Male
  Weight: 79.38 kg

DRUGS (1)
  1. CLOZAPINE. [Suspect]
     Active Substance: CLOZAPINE
     Route: 065

REACTIONS (25)
  - Pulmonary oedema [Recovering/Resolving]
  - Gait inability [Unknown]
  - Hypovolaemia [Unknown]
  - Benign prostatic hyperplasia [Unknown]
  - Sleep apnoea syndrome [Unknown]
  - Hyperchloraemia [Unknown]
  - Disorganised speech [Unknown]
  - Cerebrovascular accident [Unknown]
  - Toxic encephalopathy [Unknown]
  - Mental status changes [Unknown]
  - Neutrophil count abnormal [Unknown]
  - Atrioventricular block first degree [Recovered/Resolved]
  - Malnutrition [Unknown]
  - Dyslipidaemia [Unknown]
  - Confusional state [Unknown]
  - Bradycardia [Recovered/Resolved]
  - Hypernatraemia [Unknown]
  - Leukopenia [Recovered/Resolved]
  - Sepsis [Unknown]
  - Hypotension [Unknown]
  - Death [Fatal]
  - Transaminases increased [Unknown]
  - Hyperglycaemia [Unknown]
  - Hypothermia [Not Recovered/Not Resolved]
  - Malaise [Unknown]

NARRATIVE: CASE EVENT DATE: 2020
